FAERS Safety Report 4572174-3 (Version None)
Quarter: 2005Q1

REPORT INFORMATION
  Report Type: 
  Country: None (occurrence: None)
  Receive Date: 20050202
  Receipt Date: 20050114
  Transmission Date: 20050727
  Serious: Yes (Other)
  Sender: FDA-Public Use
  Company Number: USA050188671

PATIENT
  Sex: Female

DRUGS (4)
  1. GEMZAR [Suspect]
     Route: 042
  2. TAXOL [Concomitant]
  3. ATIVAN [Concomitant]
  4. ANTIEMETICS [Concomitant]

REACTIONS (3)
  - MENTAL STATUS CHANGES [None]
  - NAUSEA [None]
  - RENAL FAILURE ACUTE [None]
